FAERS Safety Report 21343721 (Version 2)
Quarter: 2022Q4

REPORT INFORMATION
  Report Type: Spontaneous
  Country: US (occurrence: US)
  Receive Date: 20220916
  Receipt Date: 20221007
  Transmission Date: 20230113
  Serious: No
  Sender: FDA-Public Use
  Company Number: US-BRISTOL-MYERS SQUIBB COMPANY-2022-102539

PATIENT
  Age: 65 Year
  Sex: Female

DRUGS (3)
  1. ORENCIA [Suspect]
     Active Substance: ABATACEPT
     Indication: Rheumatoid arthritis
     Dosage: 1000 MG, WEEKS 0, 2, AND 4 THEN EVERY 28 DAYS THEREAFTER
     Route: 042
     Dates: start: 20220830
  2. ORENCIA [Suspect]
     Active Substance: ABATACEPT
     Indication: Acute interstitial pneumonitis
  3. ORENCIA [Suspect]
     Active Substance: ABATACEPT
     Indication: Pulmonary hypertension

REACTIONS (2)
  - Adverse event [Unknown]
  - Diarrhoea [Unknown]
